FAERS Safety Report 21045423 (Version 4)
Quarter: 2025Q1

REPORT INFORMATION
  Report Type: Report from Study
  Country: DE (occurrence: DE)
  Receive Date: 20220706
  Receipt Date: 20250218
  Transmission Date: 20250409
  Serious: No
  Sender: ROCHE
  Company Number: DE-ROCHE-3132169

PATIENT
  Age: 40 Year
  Sex: Male
  Weight: 115 kg

DRUGS (11)
  1. OCRELIZUMAB [Suspect]
     Active Substance: OCRELIZUMAB
     Indication: Relapsing multiple sclerosis
     Route: 040
     Dates: start: 20200706, end: 20200720
  2. OCRELIZUMAB [Suspect]
     Active Substance: OCRELIZUMAB
     Route: 040
     Dates: start: 20201222
  3. PFIZER-BIONTECH COVID-19 VACCINE [Concomitant]
     Active Substance: TOZINAMERAN
     Indication: COVID-19 prophylaxis
     Route: 030
     Dates: start: 20210427, end: 20210427
  4. PFIZER-BIONTECH COVID-19 VACCINE [Concomitant]
     Active Substance: TOZINAMERAN
     Route: 030
     Dates: start: 20211028, end: 20211028
  5. PFIZER-BIONTECH COVID-19 VACCINE [Concomitant]
     Active Substance: TOZINAMERAN
     Route: 030
     Dates: start: 20210406, end: 20210406
  6. EBASTINE [Concomitant]
     Active Substance: EBASTINE
     Route: 048
     Dates: start: 20200706
  7. PREDNISOLONE [Concomitant]
     Active Substance: PREDNISOLONE
     Route: 040
     Dates: start: 20200706
  8. CHOLECALCIFEROL [Concomitant]
     Active Substance: CHOLECALCIFEROL
     Indication: Vitamin D deficiency
     Route: 048
     Dates: start: 2014
  9. VENLAFAXINE HYDROCHLORIDE [Concomitant]
     Active Substance: VENLAFAXINE HYDROCHLORIDE
     Indication: Depression
     Route: 048
     Dates: start: 2016, end: 202111
  10. IBUPROFEN [Concomitant]
     Active Substance: IBUPROFEN
     Route: 048
     Dates: start: 20220330
  11. TAVOR (LORAZEPAM) [Concomitant]
     Active Substance: LORAZEPAM
     Indication: Panic attack
     Route: 048

REACTIONS (4)
  - Transaminases increased [Not Recovered/Not Resolved]
  - Bronchitis [Recovered/Resolved]
  - COVID-19 [Recovered/Resolved]
  - Localised infection [Recovered/Resolved]

NARRATIVE: CASE EVENT DATE: 20220303
